FAERS Safety Report 6307023-6 (Version None)
Quarter: 2009Q3

REPORT INFORMATION
  Report Type: 
  Country: None (occurrence: None)
  Receive Date: 20090812
  Receipt Date: 20090730
  Transmission Date: 20100115
  Serious: Yes (Other)
  Sender: FDA-Public Use
  Company Number: PHHY2008BR23302

PATIENT
  Age: 71 Year
  Sex: Female

DRUGS (6)
  1. DIOVAN AMLO FIX [Suspect]
     Indication: HYPERTENSION
     Dosage: 1 TABLET (80/5 MG) DAILY
     Route: 048
     Dates: end: 20090501
  2. LORAX [Concomitant]
  3. PURAN T4 [Concomitant]
  4. CLOPIDOGREL [Concomitant]
  5. MATRIX [Concomitant]
  6. MEPRAZON [Concomitant]
     Dosage: UNK

REACTIONS (11)
  - ABDOMINAL PAIN UPPER [None]
  - BLOOD PRESSURE INCREASED [None]
  - COUGH [None]
  - ERYTHEMA [None]
  - FALL [None]
  - MALAISE [None]
  - OROPHARYNGEAL PAIN [None]
  - PAIN IN EXTREMITY [None]
  - SWELLING [None]
  - TENDON PAIN [None]
  - TENDON RUPTURE [None]
